FAERS Safety Report 6065166-9 (Version None)
Quarter: 2009Q1

REPORT INFORMATION
  Report Type: 
  Country: None (occurrence: None)
  Receive Date: 20090204
  Receipt Date: 20090123
  Transmission Date: 20090719
  Serious: Yes (Hospitalization)
  Sender: FDA-Public Use
  Company Number: FR-ROCHE-586102

PATIENT
  Sex: Male
  Weight: 71 kg

DRUGS (3)
  1. PEG-INTERFERON ALFA 2A (RO 25-8310) [Suspect]
     Dosage: TEMPORARILY INTERRUPTED.
     Route: 058
     Dates: start: 20080212, end: 20080909
  2. RIBAVIRIN [Suspect]
     Dosage: TEMPORARILY INTERRUPTED.
     Route: 048
     Dates: start: 20080212, end: 20080909
  3. VX-950 [Suspect]
     Route: 048
     Dates: start: 20080212, end: 20080325

REACTIONS (1)
  - POLYNEUROPATHY [None]
